FAERS Safety Report 5709831-9 (Version None)
Quarter: 2008Q2

REPORT INFORMATION
  Report Type: 
  Country: None (occurrence: None)
  Receive Date: 20080418
  Receipt Date: 20070213
  Transmission Date: 20081010
  Serious: No
  Sender: FDA-Public Use
  Company Number: US-ASTRAZENECA-2007UW02907

PATIENT
  Age: 76 Year
  Sex: Female
  Weight: 51.3 kg

DRUGS (1)
  1. TOPROL-XL [Suspect]
     Indication: MITRAL VALVE PROLAPSE
     Route: 048

REACTIONS (1)
  - ALOPECIA [None]
